FAERS Safety Report 4535114-9 (Version None)
Quarter: 2004Q4

REPORT INFORMATION
  Report Type: 
  Country: None (occurrence: None)
  Receive Date: 20041214
  Receipt Date: 20040826
  Transmission Date: 20050328
  Serious: Yes (Other)
  Sender: FDA-Public Use
  Company Number: 2004231873US

PATIENT
  Sex: Female

DRUGS (2)
  1. BEXTRA [Suspect]
     Indication: ARTHRALGIA
     Dosage: 20 MG, ORAL
     Route: 048
     Dates: start: 20040101, end: 20040101
  2. VIOXX [Concomitant]

REACTIONS (2)
  - ANAEMIA [None]
  - RED BLOOD CELL COUNT DECREASED [None]
